FAERS Safety Report 18948747 (Version 1)
Quarter: 2021Q1

REPORT INFORMATION
  Report Type: Spontaneous
  Country: US (occurrence: US)
  Receive Date: 20210226
  Receipt Date: 20210226
  Transmission Date: 20210420
  Serious: No
  Sender: FDA-Public Use
  Company Number: US-ROCHE-2533799

PATIENT
  Sex: Female
  Weight: 66.28 kg

DRUGS (6)
  1. FLONASE [Concomitant]
     Active Substance: FLUTICASONE PROPIONATE
     Dosage: ONGOING UNKNOWN
     Route: 045
     Dates: start: 20190730
  2. SYMBICORT [Concomitant]
     Active Substance: BUDESONIDE\FORMOTEROL FUMARATE DIHYDRATE
     Dosage: ONGOING UNKNOWN
     Route: 055
     Dates: start: 20190730
  3. ALBUTEROL. [Concomitant]
     Active Substance: ALBUTEROL
     Dosage: ONGOING UNKNOWN
     Route: 048
     Dates: start: 20190730
  4. SINGULAIR [Concomitant]
     Active Substance: MONTELUKAST SODIUM
     Dosage: ONGOING UNKNOWN
     Route: 048
     Dates: start: 20190730
  5. XOLAIR [Suspect]
     Active Substance: OMALIZUMAB
     Indication: ASTHMA
     Dosage: ONGOING UNKNOWN
     Route: 058
     Dates: start: 20190731
  6. ALLEGRA [Concomitant]
     Active Substance: FEXOFENADINE HYDROCHLORIDE
     Dosage: ONGOING UNKNOWN
     Route: 048
     Dates: start: 20190730

REACTIONS (1)
  - Malaise [Unknown]
